FAERS Safety Report 12961233 (Version 2)
Quarter: 2017Q2

REPORT INFORMATION
  Report Type: Spontaneous
  Country: US (occurrence: US)
  Receive Date: 20161121
  Receipt Date: 20170417
  Transmission Date: 20170830
  Serious: No
  Sender: FDA-Public Use
  Company Number: US-PFIZER INC-2016535196

PATIENT
  Age: 73 Year
  Sex: Female

DRUGS (1)
  1. REVATIO [Suspect]
     Active Substance: SILDENAFIL CITRATE
     Dosage: 20 MG, UNK, (1-3 X A DAY)

REACTIONS (2)
  - Oropharyngeal pain [Unknown]
  - Product use issue [Unknown]
